FAERS Safety Report 14180685 (Version 1)
Quarter: 2017Q4

REPORT INFORMATION
  Report Type: Spontaneous
  Country: DE (occurrence: DE)
  Receive Date: 20171110
  Receipt Date: 20171110
  Transmission Date: 20180321
  Serious: Yes (Other)
  Sender: FDA-Public Use
  Company Number: DE-FRESENIUS KABI-FK201709293

PATIENT
  Age: 74 Year
  Sex: Male

DRUGS (3)
  1. POTASSIUM CHLORIDE (MANUFACTURER UNKNOWN) [Suspect]
     Active Substance: POTASSIUM CHLORIDE
     Indication: HYPOKALAEMIA
     Route: 008
  2. ROPIVACAINE [Concomitant]
     Active Substance: ROPIVACAINE
     Indication: ABDOMINAL PAIN
  3. ROPIVACAINE [Concomitant]
     Active Substance: ROPIVACAINE
     Indication: BACK PAIN
     Route: 008

REACTIONS (18)
  - Anxiety [Recovered/Resolved]
  - Gastrointestinal inflammation [Recovered/Resolved]
  - Gastrointestinal wall thickening [Recovered/Resolved]
  - Stress cardiomyopathy [Recovered/Resolved]
  - Spinal cord paralysis [Recovered/Resolved]
  - Hypertension [Recovered/Resolved]
  - White blood cell count increased [Recovered/Resolved]
  - Tachycardia [Recovered/Resolved]
  - Dyspnoea exertional [Not Recovered/Not Resolved]
  - Motor dysfunction [Recovered/Resolved]
  - Abdominal pain upper [Recovered/Resolved]
  - Respiratory depression [Recovered/Resolved]
  - Pain [Recovered/Resolved]
  - Pneumonia [Recovered/Resolved]
  - Quadriplegia [Recovered/Resolved]
  - Pruritus [Recovered/Resolved]
  - Loss of consciousness [Recovered/Resolved]
  - Incorrect route of drug administration [Recovered/Resolved]
